FAERS Safety Report 21638050 (Version 1)
Quarter: 2022Q4

REPORT INFORMATION
  Report Type: Spontaneous
  Country: CH (occurrence: CH)
  Receive Date: 20221124
  Receipt Date: 20221124
  Transmission Date: 20230112
  Serious: Yes (Other)
  Sender: FDA-Public Use
  Company Number: CH-002147023-NVSC2022CH262077

PATIENT
  Age: 83 Year
  Sex: Female

DRUGS (4)
  1. CARBOPLATIN [Suspect]
     Active Substance: CARBOPLATIN
     Indication: Endometrial adenocarcinoma
     Dosage: UNK (AUC 5) (6 CYCLES OF 3 WEEKLY)
     Route: 065
     Dates: start: 201811, end: 201902
  2. CARBOPLATIN [Suspect]
     Active Substance: CARBOPLATIN
     Dosage: UNK (AUC 4) (6 CYCLES OF 3 WEEKLY DOSE-REDUCED CARBOPLATIN)
     Route: 065
     Dates: start: 202002
  3. TAXOL [Concomitant]
     Active Substance: PACLITAXEL
     Indication: Endometrial adenocarcinoma
     Dosage: 175 MG/M2
     Route: 065
     Dates: start: 201811, end: 201902
  4. PACLITAXEL [Concomitant]
     Active Substance: PACLITAXEL
     Indication: Endometrial adenocarcinoma
     Dosage: 70 PERCENT OF 175 MG/M2
     Route: 065
     Dates: start: 202002

REACTIONS (4)
  - Neurotoxicity [Unknown]
  - Paraesthesia [Unknown]
  - Ototoxicity [Unknown]
  - Product use in unapproved indication [Unknown]
